FAERS Safety Report 6199663-2 (Version None)
Quarter: 2009Q2

REPORT INFORMATION
  Report Type: 
  Country: None (occurrence: None)
  Receive Date: 20090522
  Receipt Date: 20090518
  Transmission Date: 20091009
  Serious: Yes (Death)
  Sender: FDA-Public Use
  Company Number: KR-AVENTIS-200915130GDDC

PATIENT
  Age: 75 Year
  Sex: Male
  Weight: 65 kg

DRUGS (3)
  1. TAXOTERE [Suspect]
     Route: 042
     Dates: start: 20060529, end: 20060729
  2. ESTRAMUSTINE [Concomitant]
  3. PREDNISOLONE [Concomitant]
     Route: 048
     Dates: start: 20060529, end: 20060617

REACTIONS (1)
  - INTERSTITIAL LUNG DISEASE [None]
